FAERS Safety Report 20757292 (Version 1)
Quarter: 2022Q2

REPORT INFORMATION
  Report Type: Spontaneous
  Country: US (occurrence: None)
  Receive Date: 20220427
  Receipt Date: 20220427
  Transmission Date: 20220721
  Serious: Yes (Disabling)
  Sender: FDA-Public Use
  Company Number: None

PATIENT

DRUGS (1)
  1. LEVOCETIRIZINE [Suspect]
     Active Substance: LEVOCETIRIZINE

REACTIONS (10)
  - Dry skin [None]
  - Nausea [None]
  - Abdominal pain [None]
  - Fatigue [None]
  - Thirst [None]
  - Dehydration [None]
  - Decreased appetite [None]
  - Urinary incontinence [None]
  - Urinary retention [None]
  - Ocular hyperaemia [None]
